FAERS Safety Report 18997648 (Version 1)
Quarter: 2021Q1

REPORT INFORMATION
  Report Type: Spontaneous
  Country: US (occurrence: US)
  Receive Date: 20210311
  Receipt Date: 20210311
  Transmission Date: 20210420
  Serious: Yes (Other)
  Sender: FDA-Public Use
  Company Number: US-AMGEN-USASP2021035510

PATIENT
  Age: 73 Year
  Sex: Female

DRUGS (1)
  1. PROLIA [Suspect]
     Active Substance: DENOSUMAB
     Indication: OSTEOPOROSIS POSTMENOPAUSAL
     Dosage: 60 MILLIGRAM, Q6MO
     Route: 065

REACTIONS (7)
  - Dental caries [Unknown]
  - Pulmonary embolism [Unknown]
  - Hypothyroidism [Unknown]
  - Synovial cyst [Not Recovered/Not Resolved]
  - Meniscus injury [Unknown]
  - Deep vein thrombosis [Unknown]
  - Coagulopathy [Unknown]

NARRATIVE: CASE EVENT DATE: 2019
